FAERS Safety Report 8495113-1 (Version None)
Quarter: 2012Q3

REPORT INFORMATION
  Report Type: 
  Country: None (occurrence: None)
  Receive Date: 20120709
  Receipt Date: 20120626
  Transmission Date: 20120928
  Serious: No
  Sender: FDA-Public Use
  Company Number: US-JNJFOC-20120613588

PATIENT
  Sex: Female
  Weight: 47.17 kg

DRUGS (8)
  1. SYNTHROID [Concomitant]
     Indication: THYROID HORMONE REPLACEMENT THERAPY
     Route: 065
     Dates: start: 20020101
  2. UNSPECIFIED ARTHRITIC MEDICATION [Concomitant]
     Indication: ARTHRITIS
     Route: 065
  3. LYRICA [Concomitant]
     Indication: FIBROMYALGIA
     Route: 048
  4. ESTROTEST [Concomitant]
     Indication: HORMONE THERAPY
     Route: 048
     Dates: start: 19960101
  5. AMBIEN [Concomitant]
     Indication: SLEEP DISORDER THERAPY
     Route: 048
     Dates: start: 20060101
  6. CYMBALTA [Concomitant]
     Indication: ANTIDEPRESSANT THERAPY
     Route: 048
     Dates: start: 20020101
  7. DURAGESIC-100 [Suspect]
     Indication: PAIN
     Route: 062
     Dates: start: 20090101, end: 20090101
  8. DURAGESIC-100 [Suspect]
     Route: 062
     Dates: start: 20090101, end: 20120507

REACTIONS (7)
  - DYSLEXIA [None]
  - FEELING ABNORMAL [None]
  - PRODUCT QUALITY ISSUE [None]
  - DRUG DOSE OMISSION [None]
  - WRONG TECHNIQUE IN DRUG USAGE PROCESS [None]
  - INAPPROPRIATE SCHEDULE OF DRUG ADMINISTRATION [None]
  - PAIN [None]
